FAERS Safety Report 10159471 (Version 1)
Quarter: 2014Q2

REPORT INFORMATION
  Report Type: Spontaneous
  Country: GB (occurrence: GB)
  Receive Date: 20140508
  Receipt Date: 20140508
  Transmission Date: 20141212
  Serious: Yes (Other)
  Sender: FDA-Public Use
  Company Number: GB-MYLANLABS-2014S1006633

PATIENT
  Age: 56 Year
  Sex: Female
  Weight: 62.59 kg

DRUGS (13)
  1. VENLAFAXINE HYDROCHLORIDE [Suspect]
     Indication: DEPRESSION
     Route: 048
  2. SODIUM VALPROATE [Suspect]
     Indication: EPILEPSY
  3. ALENDRONIC ACID [Concomitant]
  4. AMLODIPINE [Concomitant]
  5. CO-CODAMOL [Concomitant]
  6. DOXYCYCLINE HYCLATE [Concomitant]
  7. LAXIDO /07474401/ [Concomitant]
  8. LISINOPRIL [Concomitant]
  9. LOPERAMIDE [Concomitant]
  10. MEBEVERINE [Concomitant]
  11. NATECAL D3 [Concomitant]
  12. NITROMIN /00003201/ [Concomitant]
  13. PRAVASTATIN [Concomitant]

REACTIONS (6)
  - Disturbance in attention [Recovering/Resolving]
  - Syncope [Recovering/Resolving]
  - Coordination abnormal [Recovering/Resolving]
  - Balance disorder [Recovering/Resolving]
  - Dyskinesia [Recovering/Resolving]
  - Gait disturbance [Recovering/Resolving]
